FAERS Safety Report 15010477 (Version 2)
Quarter: 2018Q2

REPORT INFORMATION
  Report Type: Spontaneous
  Country: US (occurrence: US)
  Receive Date: 20180614
  Receipt Date: 20180627
  Transmission Date: 20180711
  Serious: Yes (Life-Threatening, Other)
  Sender: FDA-Public Use
  Company Number: PHEH2018US023181

PATIENT
  Sex: Female

DRUGS (2)
  1. ESTRADERM [Suspect]
     Active Substance: ESTRADIOL
     Indication: PRODUCT USED FOR UNKNOWN INDICATION
     Route: 062
  2. VIVELLE-DOT [Suspect]
     Active Substance: ESTRADIOL
     Indication: PRODUCT USED FOR UNKNOWN INDICATION
     Route: 062

REACTIONS (12)
  - Eating disorder [Unknown]
  - Drug intolerance [Unknown]
  - Malaise [Unknown]
  - Drug dependence [Unknown]
  - Hyponatraemia [Unknown]
  - Drug ineffective [Unknown]
  - Feeling abnormal [Unknown]
  - Weight decreased [Unknown]
  - Product adhesion issue [Unknown]
  - Dyspepsia [Unknown]
  - Pain [Unknown]
  - Ill-defined disorder [Unknown]
